FAERS Safety Report 5496533-X (Version None)
Quarter: 2007Q4

REPORT INFORMATION
  Report Type: 
  Country: None (occurrence: None)
  Receive Date: 20071025
  Receipt Date: 20070803
  Transmission Date: 20080405
  Serious: No
  Sender: FDA-Public Use
  Company Number: A0655267A

PATIENT
  Age: 81 Year
  Sex: Male

DRUGS (9)
  1. ADVAIR DISKUS 100/50 [Suspect]
     Dosage: 1PUFF TWICE PER DAY
     Route: 055
     Dates: start: 20070522, end: 20070101
  2. LIPITOR [Concomitant]
  3. CORGARD [Concomitant]
  4. MODURETIC 5-50 [Concomitant]
  5. LISINOPRIL [Concomitant]
  6. ALOPURINOL [Concomitant]
  7. TETRACYCLINE [Concomitant]
  8. PRILOSEC [Concomitant]
  9. DROXARYL [Concomitant]

REACTIONS (2)
  - DRUG INEFFECTIVE [None]
  - PHARMACEUTICAL PRODUCT COMPLAINT [None]
